FAERS Safety Report 4980699-1 (Version None)
Quarter: 2006Q2

REPORT INFORMATION
  Report Type: 
  Country: None (occurrence: None)
  Receive Date: 20060424
  Receipt Date: 20051206
  Transmission Date: 20061013
  Serious: Yes (Hospitalization)
  Sender: FDA-Public Use
  Company Number: US-MERCK-0512USA00804

PATIENT
  Age: 45 Year
  Sex: Male
  Weight: 102 kg

DRUGS (16)
  1. VIOXX [Suspect]
     Indication: NECK PAIN
     Route: 048
     Dates: start: 19990101
  2. VIOXX [Suspect]
     Route: 048
     Dates: end: 20030101
  3. COREG [Concomitant]
     Indication: MYOCARDIAL INFARCTION
     Route: 048
     Dates: start: 19950101
  4. ALTACE [Concomitant]
     Indication: HYPERTENSION
     Route: 048
     Dates: start: 19950101
  5. ASPIRIN [Concomitant]
     Indication: MYOCARDIAL INFARCTION
     Route: 048
     Dates: start: 19920101
  6. GLUCOTROL [Concomitant]
     Route: 065
  7. ZETIA [Concomitant]
     Indication: BLOOD TRIGLYCERIDES INCREASED
     Route: 048
     Dates: start: 20000101
  8. PREDNISONE [Concomitant]
     Route: 065
  9. VALIUM [Concomitant]
     Indication: ANXIETY
     Route: 048
     Dates: start: 19920101
  10. MAXIDONE [Concomitant]
     Indication: PAIN
     Route: 048
     Dates: start: 19950101
  11. LEVAQUIN [Concomitant]
     Route: 065
  12. DIAZEPAM [Concomitant]
     Route: 065
  13. PLAVIX [Concomitant]
     Route: 065
  14. LIPITOR [Concomitant]
     Indication: BLOOD CHOLESTEROL INCREASED
     Route: 048
     Dates: start: 20000101
  15. LASIX [Concomitant]
     Route: 065
  16. IBUPROFEN [Concomitant]
     Indication: PAIN
     Route: 048
     Dates: start: 19920101, end: 20050801

REACTIONS (10)
  - ANGINA PECTORIS [None]
  - ARTERIOSCLEROSIS [None]
  - CARDIAC FAILURE CONGESTIVE [None]
  - CORONARY ARTERY DISEASE [None]
  - HYPERTENSION [None]
  - INSOMNIA [None]
  - MYOCARDIAL INFARCTION [None]
  - THROMBOSIS [None]
  - VENTRICULAR TACHYCARDIA [None]
  - VOMITING [None]
